FAERS Safety Report 11882394 (Version 3)
Quarter: 2016Q2

REPORT INFORMATION
  Report Type: Spontaneous
  Country: IT (occurrence: IT)
  Receive Date: 20151231
  Receipt Date: 20160520
  Transmission Date: 20160815
  Serious: Yes (Other)
  Sender: FDA-Public Use
  Company Number: IT-SA-2015SA219369

PATIENT
  Age: 41 Year
  Sex: Female

DRUGS (4)
  1. VALDORM [Concomitant]
     Active Substance: VALERIAN
  2. AUBAGIO [Suspect]
     Active Substance: TERIFLUNOMIDE
     Indication: MULTIPLE SCLEROSIS
     Route: 048
     Dates: start: 20150201, end: 20151201
  3. HALDOL [Concomitant]
     Active Substance: HALOPERIDOL
  4. RIVOTRIL [Concomitant]
     Active Substance: CLONAZEPAM

REACTIONS (1)
  - Menstruation delayed [Unknown]

NARRATIVE: CASE EVENT DATE: 20150701
